FAERS Safety Report 9284027 (Version 1)
Quarter: 2013Q2

REPORT INFORMATION
  Report Type: Spontaneous
  Country: BR (occurrence: BR)
  Receive Date: 20130510
  Receipt Date: 20130510
  Transmission Date: 20140414
  Serious: Yes (Other)
  Sender: FDA-Public Use
  Company Number: BR-ASTRAZENECA-2013SE31131

PATIENT
  Age: 82 Year
  Sex: Female
  Weight: 52 kg

DRUGS (7)
  1. VIVACOR [Suspect]
     Indication: BLOOD CHOLESTEROL INCREASED
     Route: 048
     Dates: start: 2008
  2. VIMOVO [Suspect]
     Indication: RHEUMATOID ARTHRITIS
     Dosage: 500 MG + 20 MG, DAILY
     Route: 048
     Dates: start: 201304
  3. HYDROXYCHLOROQUINE [Suspect]
     Indication: RHEUMATOID ARTHRITIS
     Route: 065
  4. METICORTEN [Suspect]
     Indication: RHEUMATOID ARTHRITIS
     Route: 065
  5. TRAMADOL [Concomitant]
     Indication: RHEUMATOID ARTHRITIS
     Dosage: DAILY
     Dates: start: 201304
  6. DIENPAX [Concomitant]
     Indication: RESPIRATORY DISORDER
     Dates: start: 1967
  7. TRYPTANOL [Concomitant]
     Indication: DEPRESSION
     Dosage: DAILY
     Dates: start: 2008

REACTIONS (4)
  - Rheumatoid arthritis [Not Recovered/Not Resolved]
  - Pain in extremity [Not Recovered/Not Resolved]
  - Transaminases abnormal [Unknown]
  - Off label use [Not Recovered/Not Resolved]
